FAERS Safety Report 14044634 (Version 2)
Quarter: 2020Q2

REPORT INFORMATION
  Report Type: Spontaneous
  Country: NL (occurrence: NL)
  Receive Date: 20171005
  Receipt Date: 20200417
  Transmission Date: 20200713
  Serious: Yes (Disabling, Other)
  Sender: FDA-Public Use
  Company Number: NL-AUROBINDO-AUR-APL-2017-10054

PATIENT
  Age: 53 Year
  Sex: Female
  Weight: 76 kg

DRUGS (3)
  1. TEMAZEPAM. [Concomitant]
     Active Substance: TEMAZEPAM
     Indication: PRODUCT USED FOR UNKNOWN INDICATION
     Dosage: UNK
     Route: 065
  2. MIDAZOLAM. [Concomitant]
     Active Substance: MIDAZOLAM
     Indication: PRODUCT USED FOR UNKNOWN INDICATION
     Dosage: 7.5 MILLIGRAM, SINGLE
     Route: 048
  3. BUPIVACA?NE SOLUTION FOR INJECTION [Suspect]
     Active Substance: BUPIVACAINE
     Indication: EPIDURAL ANAESTHESIA
     Dosage: 3 MILLILITER, 0.5%, SINGLE
     Route: 065

REACTIONS (7)
  - Loss of consciousness [Recovered/Resolved]
  - Hypertension [Recovered/Resolved]
  - Blindness cortical [Not Recovered/Not Resolved]
  - Blood pressure systolic increased [Unknown]
  - Cognitive disorder [Not Recovered/Not Resolved]
  - Anterograde amnesia [Not Recovered/Not Resolved]
  - Disorientation [Not Recovered/Not Resolved]
